FAERS Safety Report 8937076 (Version 1)
Quarter: 2012Q4

REPORT INFORMATION
  Report Type: 
  Country: DE (occurrence: JP)
  Receive Date: 20121129
  Receipt Date: 20121129
  Transmission Date: 20130627
  Serious: Yes (Other)
  Sender: FDA-Public Use
  Company Number: JP-BRISTOL-MYERS SQUIBB COMPANY-17157645

PATIENT
  Age: 40 Year
  Sex: Male

DRUGS (4)
  1. METGLUCO [Suspect]
     Indication: DIABETES MELLITUS
     Route: 048
  2. VILDAGLIPTIN [Concomitant]
     Route: 048
  3. AMARYL [Concomitant]
     Route: 048
  4. GLIMEPIRIDE [Concomitant]
     Route: 048

REACTIONS (1)
  - Gastric ulcer [Recovering/Resolving]
